FAERS Safety Report 7052406-2 (Version None)
Quarter: 2010Q4

REPORT INFORMATION
  Report Type: 
  Country: None (occurrence: None)
  Receive Date: 20101019
  Receipt Date: 20101007
  Transmission Date: 20110411
  Serious: Yes (Hospitalization)
  Sender: FDA-Public Use
  Company Number: FR-WYE-G06782010

PATIENT
  Sex: Female

DRUGS (14)
  1. PIPERACILLIN AND TAZOBACTAM [Suspect]
     Dosage: UNKNOWN
     Route: 042
     Dates: start: 20100729, end: 20100807
  2. CLAFORAN [Suspect]
     Dosage: UNKNOWN
     Route: 042
     Dates: start: 20100723, end: 20100728
  3. CANCIDAS [Suspect]
     Dosage: UNKNOWN
     Route: 042
     Dates: start: 20100724, end: 20100803
  4. CIFLOX [Suspect]
     Dosage: UNKNOWN
     Dates: start: 20100729, end: 20100808
  5. ZOVIRAX [Suspect]
     Dosage: UNKNOWN
     Dates: start: 20100719, end: 20100816
  6. TAHOR [Concomitant]
     Dosage: UNKNOWN
     Route: 048
  7. FLAGYL [Suspect]
     Dosage: UNKNOWN
     Dates: start: 20100719, end: 20100803
  8. VANCOMYCIN [Suspect]
     Dosage: UNKNOWN
     Route: 042
     Dates: start: 20100723, end: 20100808
  9. XANAX [Concomitant]
     Dosage: UNKNOWN
     Route: 048
  10. PROZAC [Concomitant]
     Dosage: UNKNOWN
     Route: 048
  11. KARDEGIC [Concomitant]
     Dosage: UNKNOWN
  12. NEXIUM [Concomitant]
     Dosage: UNKNOWN
  13. BACTRIM [Suspect]
     Dosage: UNKNOWN
     Dates: start: 20100731, end: 20100812
  14. IMIPENEM AND CILASTATIN [Suspect]
     Dosage: UNKNOWN
     Route: 042
     Dates: start: 20100810, end: 20100813

REACTIONS (14)
  - DERMATITIS BULLOUS [None]
  - DERMATITIS EXFOLIATIVE [None]
  - EOSINOPHILIA [None]
  - EYE IRRITATION [None]
  - ORAL DISORDER [None]
  - ORAL PRURITUS [None]
  - PRURITUS GENITAL [None]
  - PYREXIA [None]
  - RASH ERYTHEMATOUS [None]
  - RASH PRURITIC [None]
  - RENAL FAILURE ACUTE [None]
  - STOMATITIS [None]
  - TACHYCARDIA [None]
  - VAGINAL DISORDER [None]
